FAERS Safety Report 21476072 (Version 1)
Quarter: 2022Q4

REPORT INFORMATION
  Report Type: Report from Study
  Country: CA (occurrence: CA)
  Receive Date: 20221019
  Receipt Date: 20221019
  Transmission Date: 20230113
  Serious: Yes (Hospitalization)
  Sender: FDA-Public Use
  Company Number: CA-JNJFOC-20220732664

PATIENT
  Age: 38 Year
  Sex: Female
  Weight: 81.266 kg

DRUGS (2)
  1. STELARA [Suspect]
     Active Substance: USTEKINUMAB
     Indication: Crohn^s disease
     Route: 058
     Dates: start: 20170623
  2. STELARA [Suspect]
     Active Substance: USTEKINUMAB

REACTIONS (3)
  - Post procedural infection [Recovered/Resolved]
  - Hysterectomy [Unknown]
  - Gastrointestinal injury [Recovering/Resolving]

NARRATIVE: CASE EVENT DATE: 20220701
